FAERS Safety Report 13823813 (Version 1)
Quarter: 2017Q3

REPORT INFORMATION
  Report Type: Spontaneous
  Country: US (occurrence: US)
  Receive Date: 20170802
  Receipt Date: 20170802
  Transmission Date: 20171127
  Serious: No
  Sender: FDA-Public Use
  Company Number: US-PFIZER INC-2017330413

PATIENT
  Age: 10 Year
  Sex: Male
  Weight: 54.43 kg

DRUGS (2)
  1. ZOLOFT [Suspect]
     Active Substance: SERTRALINE HYDROCHLORIDE
     Dosage: 1.2 ML, 1X/DAY
     Route: 048
  2. ZOLOFT [Suspect]
     Active Substance: SERTRALINE HYDROCHLORIDE
     Indication: ANXIETY
     Dosage: UNK (ON LESS OF A DOSE)
     Route: 048
     Dates: start: 2013

REACTIONS (3)
  - Inappropriate schedule of drug administration [Unknown]
  - Product use in unapproved indication [Unknown]
  - Drug ineffective [Unknown]
